FAERS Safety Report 9357560 (Version 1)
Quarter: 2013Q2

REPORT INFORMATION
  Report Type: Spontaneous
  Country: JP (occurrence: JP)
  Receive Date: 20130620
  Receipt Date: 20130620
  Transmission Date: 20140414
  Serious: Yes (Death, Life-Threatening, Hospitalization, Other)
  Sender: FDA-Public Use
  Company Number: JP-ROCHE-1224739

PATIENT
  Age: 44 Year
  Sex: Female
  Weight: 59 kg

DRUGS (2)
  1. HERCEPTIN [Suspect]
     Indication: RECTAL CANCER
     Dosage: DOSAGE IS UNCERTAIN.
     Route: 041
     Dates: start: 20130509, end: 20130509
  2. HERCEPTIN [Suspect]
     Indication: OFF LABEL USE

REACTIONS (4)
  - Infusion related reaction [Fatal]
  - Shock [Fatal]
  - Multi-organ failure [Fatal]
  - Acute hepatic failure [Unknown]
